FAERS Safety Report 4874030-X (Version None)
Quarter: 2006Q1

REPORT INFORMATION
  Report Type: 
  Country: None (occurrence: None)
  Receive Date: 20060106
  Receipt Date: 20051227
  Transmission Date: 20060701
  Serious: Yes (Death)
  Sender: FDA-Public Use
  Company Number: JP-BRISTOL-MYERS SQUIBB COMPANY-13230289

PATIENT
  Age: 61 Year
  Sex: Male

DRUGS (5)
  1. VIDEX EC [Suspect]
     Indication: HIV INFECTION
     Route: 048
     Dates: start: 20010605, end: 20041002
  2. ZERIT [Suspect]
     Indication: HIV INFECTION
     Route: 048
     Dates: start: 20000507, end: 20041002
  3. STOCRIN [Suspect]
     Indication: HIV INFECTION
     Route: 048
     Dates: start: 20020604, end: 20041002
  4. VIDEX [Suspect]
     Indication: HIV INFECTION
     Route: 048
     Dates: start: 20000507, end: 20010604
  5. VIRACEPT [Concomitant]
     Route: 048
     Dates: start: 20030507

REACTIONS (1)
  - DEATH [None]
